FAERS Safety Report 15810727 (Version 1)
Quarter: 2019Q1

REPORT INFORMATION
  Report Type: Spontaneous
  Country: GB (occurrence: GB)
  Receive Date: 20190111
  Receipt Date: 20190111
  Transmission Date: 20190417
  Serious: Yes (Other)
  Sender: FDA-Public Use
  Company Number: GB-TEVA-2019-GB-997226

PATIENT
  Age: 78 Year
  Sex: Female

DRUGS (9)
  1. ACCRETE D3 [Concomitant]
     Active Substance: CALCIUM CARBONATE\CHOLECALCIFEROL
  2. TRIMETHOPRIM. [Suspect]
     Active Substance: TRIMETHOPRIM
     Indication: URINARY TRACT INFECTION
     Dosage: 400 MILLIGRAM DAILY;
     Route: 048
     Dates: start: 201809
  3. OMEPRAZOLE. [Concomitant]
     Active Substance: OMEPRAZOLE
  4. MEBEVERINE [Concomitant]
     Active Substance: MEBEVERINE
  5. FOLIC ACID. [Concomitant]
     Active Substance: FOLIC ACID
  6. DIAZEPAM. [Concomitant]
     Active Substance: DIAZEPAM
  7. SIMVASTATIN. [Concomitant]
     Active Substance: SIMVASTATIN
  8. GABAPENTIN. [Concomitant]
     Active Substance: GABAPENTIN
  9. MIRTAZAPINE. [Concomitant]
     Active Substance: MIRTAZAPINE

REACTIONS (1)
  - Pancytopenia [Recovered/Resolved]
